FAERS Safety Report 5067736-3 (Version None)
Quarter: 2006Q3

REPORT INFORMATION
  Report Type: 
  Country: None (occurrence: None)
  Receive Date: 20060706
  Receipt Date: 20060315
  Transmission Date: 20061208
  Serious: No
  Sender: FDA-Public Use
  Company Number: 200511804BWH

PATIENT
  Age: 73 Year
  Sex: Male

DRUGS (12)
  1. LEVITRA [Suspect]
     Indication: ERECTILE DYSFUNCTION
     Dosage: 40 MG ONCE ORAL ; 30 MG ONCE ORAL
     Route: 048
     Dates: start: 20050831
  2. LEVITRA [Suspect]
     Indication: ERECTILE DYSFUNCTION
     Dosage: 40 MG ONCE ORAL ; 30 MG ONCE ORAL
     Route: 048
     Dates: start: 20060223
  3. PROSCAR [Concomitant]
  4. VIAGRA [Concomitant]
  5. CIALIS [Concomitant]
  6. LISINOPRIL [Concomitant]
  7. FLOMAX [Concomitant]
  8. ASPIRIN [Concomitant]
  9. VITAMIN E [Concomitant]
  10. ASCORBIC ACID [Concomitant]
  11. MULTI-VITAMIN [Concomitant]
  12. NEXIUM [Concomitant]

REACTIONS (2)
  - ERECTILE DYSFUNCTION [None]
  - FATIGUE [None]
